FAERS Safety Report 7003018-8 (Version None)
Quarter: 2010Q3

REPORT INFORMATION
  Report Type: 
  Country: None (occurrence: None)
  Receive Date: 20100920
  Receipt Date: 20090818
  Transmission Date: 20110219
  Serious: No
  Sender: FDA-Public Use
  Company Number: US-ASTRAZENECA-2008UW13012

PATIENT
  Age: 514 Month
  Sex: Female
  Weight: 135.2 kg

DRUGS (18)
  1. SEROQUEL [Suspect]
     Indication: DEPRESSION
     Dosage: 100-200MG
     Route: 048
     Dates: start: 20060501, end: 20071001
  2. SEROQUEL [Suspect]
     Indication: GENERALISED ANXIETY DISORDER
     Dosage: 100-200MG
     Route: 048
     Dates: start: 20060501, end: 20071001
  3. SEROQUEL [Suspect]
     Indication: SOCIAL PHOBIA
     Dosage: 100-200MG
     Route: 048
     Dates: start: 20060501, end: 20071001
  4. SEROQUEL [Suspect]
     Indication: INSOMNIA
     Dosage: 100-200MG
     Route: 048
     Dates: start: 20060501, end: 20071001
  5. SEROQUEL [Suspect]
     Indication: BIPOLAR DISORDER
     Dosage: 100-200MG
     Route: 048
     Dates: start: 20060501, end: 20071001
  6. SEROQUEL [Suspect]
     Route: 048
     Dates: start: 20051001, end: 20081101
  7. SEROQUEL [Suspect]
     Route: 048
     Dates: start: 20051001, end: 20081101
  8. SEROQUEL [Suspect]
     Route: 048
     Dates: start: 20051001, end: 20081101
  9. SEROQUEL [Suspect]
     Route: 048
     Dates: start: 20051001, end: 20081101
  10. SEROQUEL [Suspect]
     Route: 048
     Dates: start: 20051001, end: 20081101
  11. ALLI [Concomitant]
  12. CLOZARIL [Concomitant]
  13. HALDOL [Concomitant]
  14. RISPERDAL [Concomitant]
  15. TRAZODONE HCL [Concomitant]
  16. LAMICTAL [Concomitant]
  17. BUSPAR [Concomitant]
     Dates: start: 20080301
  18. CITALOPRAM HYDROBROMIDE [Concomitant]
     Dates: start: 20070801, end: 20080101

REACTIONS (5)
  - GLYCOSURIA [None]
  - HYPERGLYCAEMIA [None]
  - TYPE 2 DIABETES MELLITUS [None]
  - UPPER LIMB FRACTURE [None]
  - WEIGHT INCREASED [None]
